FAERS Safety Report 12985626 (Version 1)
Quarter: 2016Q4

REPORT INFORMATION
  Report Type: Spontaneous
  Country: IT (occurrence: IT)
  Receive Date: 20161130
  Receipt Date: 20161130
  Transmission Date: 20170207
  Serious: Yes (Other)
  Sender: FDA-Public Use
  Company Number: IT-AMGEN-ITASP2016167576

PATIENT
  Age: 67 Year
  Sex: Female

DRUGS (3)
  1. CEFTRIAXONE. [Concomitant]
     Active Substance: CEFTRIAXONE
     Dosage: 1 G, QD
     Route: 030
  2. XGEVA [Suspect]
     Active Substance: DENOSUMAB
     Indication: BREAST CANCER
     Dosage: 120 MG, Q4WK
     Route: 058
     Dates: start: 2003
  3. METRONIDAZOLE. [Concomitant]
     Active Substance: METRONIDAZOLE
     Dosage: 500 MG, BID
     Route: 048

REACTIONS (2)
  - Osteonecrosis of jaw [Recovered/Resolved]
  - Tooth loss [Recovered/Resolved]
